FAERS Safety Report 17835723 (Version 2)
Quarter: 2020Q2

REPORT INFORMATION
  Report Type: Spontaneous
  Country: DE (occurrence: DE)
  Receive Date: 20200528
  Receipt Date: 20200604
  Transmission Date: 20200714
  Serious: Yes (Death, Life-Threatening)
  Sender: FDA-Public Use
  Company Number: NVSC2020DE142430

PATIENT
  Sex: Female
  Weight: 61.8 kg

DRUGS (1)
  1. LETROZOLE. [Suspect]
     Active Substance: LETROZOLE
     Indication: BREAST CANCER METASTATIC
     Dosage: UNK
     Route: 065

REACTIONS (8)
  - Hepatic failure [Fatal]
  - Metastases to liver [Fatal]
  - Decreased appetite [Unknown]
  - Oedema peripheral [Unknown]
  - Breast cancer metastatic [Fatal]
  - Malignant neoplasm progression [Fatal]
  - Metastases to meninges [Fatal]
  - Fatigue [Unknown]

NARRATIVE: CASE EVENT DATE: 20190902
